FAERS Safety Report 20964193 (Version 2)
Quarter: 2022Q2

REPORT INFORMATION
  Report Type: Spontaneous
  Country: US (occurrence: US)
  Receive Date: 20220615
  Receipt Date: 20220615
  Transmission Date: 20220720
  Serious: Yes (Death, Other)
  Sender: FDA-Public Use
  Company Number: US-PFIZER INC-202200820338

PATIENT
  Age: 7 Year
  Sex: Female

DRUGS (10)
  1. METHOTREXATE SODIUM [Suspect]
     Active Substance: METHOTREXATE SODIUM
     Indication: Osteosarcoma
     Dosage: HIGH DOSE
     Route: 042
  2. METHOTREXATE SODIUM [Suspect]
     Active Substance: METHOTREXATE SODIUM
     Dosage: 10 G/M2
  3. METHOTREXATE SODIUM [Suspect]
     Active Substance: METHOTREXATE SODIUM
     Dosage: GRADUALLY ESCALATED TO 20 G/M2
  4. VINCRISTINE SULFATE [Suspect]
     Active Substance: VINCRISTINE SULFATE
     Indication: Osteosarcoma
     Dosage: UNK
  5. LEUCOVORIN CALCIUM [Suspect]
     Active Substance: LEUCOVORIN CALCIUM
     Indication: Osteosarcoma
     Dosage: 10 MG ORALLY EVERY 6 HOURS FOR 3 DAYS
  6. LEUCOVORIN CALCIUM [Suspect]
     Active Substance: LEUCOVORIN CALCIUM
     Dosage: 12 COURSE
  7. BLEOMYCIN SULFATE [Concomitant]
     Active Substance: BLEOMYCIN SULFATE
     Indication: Osteosarcoma
     Dosage: TWO COURSES
  8. CYCLOPHOSPHAMIDE [Concomitant]
     Active Substance: CYCLOPHOSPHAMIDE
     Indication: Osteosarcoma
     Dosage: TWO COURSES
  9. ACTINOMYCIN D [Concomitant]
     Active Substance: DACTINOMYCIN
     Indication: Osteosarcoma
     Dosage: TWO COURSES
  10. DOXORUBICIN [Concomitant]
     Active Substance: DOXORUBICIN
     Indication: Osteosarcoma
     Dosage: TWO COURSES

REACTIONS (7)
  - Leukoencephalopathy [Fatal]
  - Neurotoxicity [Fatal]
  - Drug ineffective [Unknown]
  - Pyrexia [Unknown]
  - Rash [Unknown]
  - Mucosal inflammation [Unknown]
  - Diarrhoea [Unknown]
